FAERS Safety Report 6533679-9 (Version None)
Quarter: 2010Q1

REPORT INFORMATION
  Report Type: 
  Country: None (occurrence: None)
  Receive Date: 20100111
  Receipt Date: 20100104
  Transmission Date: 20100710
  Serious: Yes (Hospitalization)
  Sender: FDA-Public Use
  Company Number: FR-ABBOTT-09P-056-0607264-00

PATIENT
  Sex: Female

DRUGS (5)
  1. DEPAKENE [Suspect]
     Indication: INTENTIONAL OVERDOSE
     Route: 048
     Dates: start: 20090911, end: 20090911
  2. KEPPRA [Suspect]
     Indication: INTENTIONAL OVERDOSE
     Route: 048
     Dates: start: 20090911, end: 20090911
  3. DEPAKINE CHRONO [Concomitant]
     Indication: EPILEPSY
     Route: 048
  4. XANAX [Concomitant]
     Indication: DRUG USE FOR UNKNOWN INDICATION
     Route: 048
  5. TERCIAN [Concomitant]
     Indication: DRUG USE FOR UNKNOWN INDICATION
     Route: 048

REACTIONS (3)
  - CONVULSION [None]
  - MULTIPLE DRUG OVERDOSE INTENTIONAL [None]
  - SOMNOLENCE [None]
